FAERS Safety Report 22033046 (Version 1)
Quarter: 2023Q1

REPORT INFORMATION
  Report Type: Spontaneous
  Country: US (occurrence: None)
  Receive Date: 20230221
  Receipt Date: 20230221
  Transmission Date: 20230417
  Serious: No
  Sender: FDA-Public Use
  Company Number: None

PATIENT
  Age: 71 Year
  Sex: Male
  Weight: 66.41 kg

DRUGS (53)
  1. LENALIDOMIDE [Suspect]
     Active Substance: LENALIDOMIDE
     Indication: Chronic lymphocytic leukaemia
     Dosage: 10MG DAILY ORAL?
     Route: 048
  2. PROBIOTIC [Concomitant]
  3. ACYCLOVIR [Concomitant]
  4. ALBUTEROL SULFATE [Concomitant]
  5. ALIVE HAIR, SKIN + NAILS [Concomitant]
  6. OMEGA-3 DHA [Concomitant]
  7. ALOE VESTA PROTECTIVE EXTERNAL OINT [Concomitant]
  8. ALPHAGAN P [Concomitant]
  9. AUGMENTIN [Concomitant]
  10. B-COMPLEX [Concomitant]
  11. BETA [Concomitant]
  12. CAROTENE [Concomitant]
  13. CENTRUM [Concomitant]
  14. CHROMIUM PICOLINATE [Concomitant]
  15. HAIR/SKIN/NAILS [Concomitant]
  16. MAGNESIUM OXIDE MELATONIN [Concomitant]
  17. RED YEAST RICE [Concomitant]
  18. DEXAMETHASONE [Concomitant]
  19. DILTIAZEM HCI ER [Concomitant]
  20. ELIQUIS [Concomitant]
  21. ESOMEPRAZOLE MAGNESIUM [Concomitant]
  22. FIBER LAXATIVE [Concomitant]
  23. FUROSEMIDE [Concomitant]
  24. GENTAMICIN SULFATE OPHTHALMIC [Concomitant]
  25. GLUCOSAMINE-CHONDROITIN [Concomitant]
  26. VITAMIN C W/ROSE HIPS [Concomitant]
  27. HUMALOG [Concomitant]
  28. L-LYSINE [Concomitant]
  29. LEVEMIR SUBCUTANOUS [Concomitant]
  30. LEVOTHYROXINE [Concomitant]
  31. LOSARTAN POTASSIUM [Concomitant]
  32. MAGNESIUM OXIDE MELATONIN [Concomitant]
  33. MOXIFLOXACIN [Concomitant]
  34. MUCINEX DM [Concomitant]
  35. MUPIROCIN [Concomitant]
  36. OMEGA-3-6-9 [Concomitant]
  37. ONDANSETRON [Concomitant]
  38. POTASSIUM CHLORIDE CRYS ER [Concomitant]
  39. POTASSIUM GLUCONATE [Concomitant]
  40. PREDNISOLON-MOXIFLOX-BROMFENAC OPHT [Concomitant]
  41. PREDNISONE [Concomitant]
  42. PROBIOTIC FORMULA [Concomitant]
  43. PROCHLORPERAZINE [Concomitant]
  44. TUMERIC COMPLEX [Concomitant]
  45. VITAMIN C [Concomitant]
     Active Substance: ASCORBIC ACID
  46. SAMBUCUS ELDERBERRY IMMUNE [Concomitant]
  47. VITAMINS [Concomitant]
     Active Substance: VITAMINS
  48. TIMOLOL MALEATE [Concomitant]
  49. TOTAL BEST CHEWS [Concomitant]
  50. TUMERIC [Concomitant]
  51. VALACYCLOVIR [Concomitant]
  52. VITAMIN B12 [Concomitant]
  53. VITAMIN D3 [Concomitant]

REACTIONS (1)
  - White blood cell count decreased [None]
